FAERS Safety Report 25360891 (Version 1)
Quarter: 2025Q2

REPORT INFORMATION
  Report Type: Spontaneous
  Country: US (occurrence: US)
  Receive Date: 20250527
  Receipt Date: 20250527
  Transmission Date: 20250716
  Serious: Yes (Other)
  Sender: NOVO NORDISK
  Company Number: US-NOVOPROD-1434645

PATIENT
  Age: 49 Year
  Sex: Female

DRUGS (3)
  1. OZEMPIC [Suspect]
     Active Substance: SEMAGLUTIDE
     Indication: Product used for unknown indication
     Dates: start: 2024
  2. OZEMPIC [Suspect]
     Active Substance: SEMAGLUTIDE
     Dates: start: 2024
  3. OZEMPIC [Suspect]
     Active Substance: SEMAGLUTIDE
     Dates: start: 2024

REACTIONS (3)
  - Loss of consciousness [Unknown]
  - Diarrhoea haemorrhagic [Unknown]
  - Weight decreased [Unknown]
